FAERS Safety Report 8791545 (Version 1)
Quarter: 2012Q4

REPORT INFORMATION
  Report Type: Spontaneous
  Country: PK (occurrence: None)
  Receive Date: 20120912
  Receipt Date: 20120912
  Transmission Date: 20130627
  Serious: Yes (Hospitalization, Other)
  Sender: FDA-Public Use
  Company Number: 2012MA010698

PATIENT
  Age: 40 Year
  Sex: Female

DRUGS (1)
  1. FEVERALL [Suspect]
     Indication: FEVER

REACTIONS (9)
  - Stevens-Johnson syndrome [None]
  - Toxic epidermal necrolysis [None]
  - Haemoglobin decreased [None]
  - Platelet count decreased [None]
  - Hypokalaemia [None]
  - Blood bicarbonate decreased [None]
  - Diarrhoea [None]
  - Vomiting [None]
  - Pyrexia [None]
